FAERS Safety Report 7601208-4 (Version None)
Quarter: 2011Q3

REPORT INFORMATION
  Report Type: 
  Country: None (occurrence: None)
  Receive Date: 20110711
  Receipt Date: 20110701
  Transmission Date: 20111222
  Serious: Yes (Other)
  Sender: FDA-Public Use
  Company Number: CN-GLAXOSMITHKLINE-B0728836A

PATIENT
  Age: 7 Year
  Sex: Male

DRUGS (2)
  1. GLUCOSE [Concomitant]
     Indication: UPPER RESPIRATORY TRACT INFECTION
     Route: 042
  2. CEFUROXIME SODIUM [Suspect]
     Indication: UPPER RESPIRATORY TRACT INFECTION
     Dosage: .75G PER DAY
     Route: 042

REACTIONS (5)
  - HYPERSENSITIVITY [None]
  - URTICARIA [None]
  - CYANOSIS [None]
  - FLUSHING [None]
  - DYSPNOEA [None]
